FAERS Safety Report 24145175 (Version 3)
Quarter: 2025Q2

REPORT INFORMATION
  Report Type: Report from Study
  Country: AR (occurrence: AR)
  Receive Date: 20240729
  Receipt Date: 20250415
  Transmission Date: 20250717
  Serious: Yes (Hospitalization)
  Sender: JOHNSON AND JOHNSON
  Company Number: AR-JNJFOC-20240264381

PATIENT
  Age: 73 Year
  Sex: Female

DRUGS (2)
  1. REMICADE [Suspect]
     Active Substance: INFLIXIMAB
     Indication: Rheumatoid arthritis
     Route: 041
     Dates: start: 20170920
  2. MEPREDNISONE [Concomitant]
     Active Substance: MEPREDNISONE

REACTIONS (5)
  - Syncope [Unknown]
  - Atypical pneumonia [Unknown]
  - Senile dementia [Unknown]
  - Laryngeal dyskinesia [Unknown]
  - Aspiration [Unknown]

NARRATIVE: CASE EVENT DATE: 20240120
